FAERS Safety Report 26184439 (Version 1)
Quarter: 2025Q4

REPORT INFORMATION
  Report Type: Spontaneous
  Country: US (occurrence: US)
  Receive Date: 20251222
  Receipt Date: 20251222
  Transmission Date: 20260117
  Serious: No
  Sender: MERCK SHARP & DOHME LLC
  Company Number: US-009507513-2360856

PATIENT
  Age: 44 Year
  Sex: Male

DRUGS (2)
  1. IVERMECTIN [Suspect]
     Active Substance: IVERMECTIN
     Indication: Strongyloidiasis
     Dosage: TWO DOSES
  2. CEFAZOLIN [Concomitant]
     Active Substance: CEFAZOLIN
     Indication: Streptococcal endocarditis

REACTIONS (1)
  - Product use in unapproved indication [Unknown]
